FAERS Safety Report 5446489-0 (Version None)
Quarter: 2007Q3

REPORT INFORMATION
  Report Type: 
  Country: None (occurrence: None)
  Receive Date: 20070907
  Receipt Date: 20070905
  Transmission Date: 20080115
  Serious: Yes (Other)
  Sender: FDA-Public Use
  Company Number: US-JNJFOC-20070900812

PATIENT
  Age: 42 Year
  Sex: Male
  Weight: 93.44 kg

DRUGS (4)
  1. PEPCID AC [Suspect]
     Route: 048
  2. PEPCID AC [Suspect]
     Indication: DYSPEPSIA
     Route: 048
  3. GLUCOTROL [Concomitant]
     Indication: TYPE 2 DIABETES MELLITUS
  4. DILANTIN [Concomitant]
     Indication: CONVULSION

REACTIONS (3)
  - DEHYDRATION [None]
  - DIARRHOEA [None]
  - HEADACHE [None]
